FAERS Safety Report 6584152-3 (Version None)
Quarter: 2010Q1

REPORT INFORMATION
  Report Type: 
  Country: None (occurrence: None)
  Receive Date: 20100216
  Receipt Date: 20100209
  Transmission Date: 20100710
  Serious: Yes (Death)
  Sender: FDA-Public Use
  Company Number: DE-JNJFOC-20100204019

PATIENT
  Age: 83 Year
  Sex: Female

DRUGS (3)
  1. TOPAMAX [Suspect]
     Indication: EPILEPSY
     Route: 048
     Dates: start: 20091229, end: 20100107
  2. UNACID PD [Concomitant]
     Indication: PNEUMONIA
     Route: 048
     Dates: start: 20091228, end: 20100103
  3. ALLOPURINOL [Concomitant]
     Indication: HYPERURICAEMIA
     Route: 048
     Dates: end: 20100105

REACTIONS (2)
  - HEPATIC FAILURE [None]
  - RENAL FAILURE [None]
